FAERS Safety Report 6892255-9 (Version None)
Quarter: 2010Q3

REPORT INFORMATION
  Report Type: 
  Country: None (occurrence: None)
  Receive Date: 20100731
  Receipt Date: 20080313
  Transmission Date: 20110219
  Serious: No
  Sender: FDA-Public Use
  Company Number: US-PFIZER INC-2008024359

PATIENT
  Sex: Female

DRUGS (2)
  1. NORVASC [Suspect]
     Indication: BLOOD PRESSURE
  2. PREVACID [Concomitant]

REACTIONS (3)
  - FATIGUE [None]
  - HEART RATE INCREASED [None]
  - NAUSEA [None]
